FAERS Safety Report 12917794 (Version 1)
Quarter: 2016Q4

REPORT INFORMATION
  Report Type: Spontaneous
  Country: US (occurrence: US)
  Receive Date: 20161107
  Receipt Date: 20161107
  Transmission Date: 20170207
  Serious: No
  Sender: FDA-Public Use
  Company Number: US-PFIZER INC-2016516596

PATIENT
  Sex: Female

DRUGS (1)
  1. LYRICA [Suspect]
     Active Substance: PREGABALIN
     Indication: TOOTH DISORDER
     Dosage: 225 MG, DAILY (THREE 75MG CAPSULES SHE^S TAKING DAILY)

REACTIONS (1)
  - Drug ineffective for unapproved indication [Unknown]
